FAERS Safety Report 18394524 (Version 1)
Quarter: 2020Q4

REPORT INFORMATION
  Report Type: Spontaneous
  Country: GB (occurrence: GB)
  Receive Date: 20201017
  Receipt Date: 20201017
  Transmission Date: 20210114
  Serious: Yes (Other)
  Sender: FDA-Public Use
  Company Number: NVSC2020GB274864

PATIENT
  Age: 61 Year
  Sex: Female
  Weight: 72 kg

DRUGS (7)
  1. IBUPROFEN. [Concomitant]
     Active Substance: IBUPROFEN
     Indication: PRODUCT USED FOR UNKNOWN INDICATION
     Dosage: UNK (APPLY 3-4 TIMES/DAY)
     Route: 065
     Dates: start: 20200629, end: 20200727
  2. OTOMIZE [DEXAMETHASONE\NEOMYCIN SULFATE] [Concomitant]
     Active Substance: DEXAMETHASONE\NEOMYCIN SULFATE
     Indication: PRODUCT USED FOR UNKNOWN INDICATION
     Dosage: 3 DF, QD (SPRAY)
     Route: 065
     Dates: start: 20200706, end: 20200711
  3. CLARITHROMYCIN. [Concomitant]
     Active Substance: CLARITHROMYCIN
     Indication: PRODUCT USED FOR UNKNOWN INDICATION
     Dosage: 10 ML, Q12H (5 ML SPOON)
     Route: 065
     Dates: start: 20200706, end: 20200713
  4. SIMVASTATIN. [Concomitant]
     Active Substance: SIMVASTATIN
     Indication: PRODUCT USED FOR UNKNOWN INDICATION
     Dosage: 1 DF, QD (NIGHT)
     Route: 065
     Dates: start: 20200228, end: 20200902
  5. ROSUVASTATIN. [Suspect]
     Active Substance: ROSUVASTATIN
     Indication: PRODUCT USED FOR UNKNOWN INDICATION
     Dosage: 5 MG, QD (EACH NIGHT AFTER A MEAL)
     Route: 065
     Dates: start: 20200902
  6. MOMETASONE [Concomitant]
     Active Substance: MOMETASONE
     Indication: PRODUCT USED FOR UNKNOWN INDICATION
     Dosage: 4 DF, QD (BEFORE BEDTIME AS EXPLAINED)
     Route: 045
     Dates: start: 20200902
  7. CIPROFLOXACIN. [Concomitant]
     Active Substance: CIPROFLOXACIN
     Indication: PRODUCT USED FOR UNKNOWN INDICATION
     Dosage: 6 DRP, QD (TO THE LE)
     Route: 065
     Dates: start: 20200629, end: 20200706

REACTIONS (1)
  - Swollen tongue [Recovered/Resolved]

NARRATIVE: CASE EVENT DATE: 20200917
